FAERS Safety Report 14529492 (Version 1)
Quarter: 2018Q1

REPORT INFORMATION
  Report Type: Spontaneous
  Country: US (occurrence: US)
  Receive Date: 20180213
  Receipt Date: 20180213
  Transmission Date: 20180509
  Serious: No
  Sender: FDA-Public Use
  Company Number: None

PATIENT
  Age: 56 Year
  Sex: Female

DRUGS (9)
  1. OXYCOD/AP [Concomitant]
  2. PREVACID [Concomitant]
     Active Substance: LANSOPRAZOLE
  3. NEURONTIN [Concomitant]
     Active Substance: GABAPENTIN
  4. URSODIOL. [Concomitant]
     Active Substance: URSODIOL
  5. ATIVAN [Concomitant]
     Active Substance: LORAZEPAM
  6. ESTRADIOL. [Concomitant]
     Active Substance: ESTRADIOL
  7. OCALIVA [Suspect]
     Active Substance: OBETICHOLIC ACID
     Indication: PRIMARY BILIARY CHOLANGITIS
     Route: 048
     Dates: start: 20161105
  8. BACLOFEN. [Concomitant]
     Active Substance: BACLOFEN
  9. CELEXA [Concomitant]
     Active Substance: CITALOPRAM HYDROBROMIDE

REACTIONS (3)
  - Influenza [None]
  - Viral infection [None]
  - Malaise [None]

NARRATIVE: CASE EVENT DATE: 20180207
